FAERS Safety Report 25043800 (Version 1)
Quarter: 2025Q1

REPORT INFORMATION
  Report Type: Spontaneous
  Country: DE (occurrence: DE)
  Receive Date: 20250306
  Receipt Date: 20250306
  Transmission Date: 20250408
  Serious: Yes (Other)
  Sender: TAKEDA
  Company Number: DE-TAKEDA-2025TUS022342

PATIENT

DRUGS (1)
  1. CUVITRU [Suspect]
     Active Substance: HUMAN IMMUNOGLOBULIN G
     Indication: Gene mutation

REACTIONS (2)
  - Nephrotic syndrome [Unknown]
  - Glomerulonephritis membranoproliferative [Unknown]
